FAERS Safety Report 21591628 (Version 1)
Quarter: 2022Q4

REPORT INFORMATION
  Report Type: Spontaneous
  Country: CA (occurrence: None)
  Receive Date: 20221114
  Receipt Date: 20221114
  Transmission Date: 20230113
  Serious: Yes (Life-Threatening, Other)
  Sender: FDA-Public Use
  Company Number: 2022A373784

PATIENT
  Sex: Female

DRUGS (6)
  1. SYMBICORT [Suspect]
     Active Substance: BUDESONIDE\FORMOTEROL FUMARATE DIHYDRATE
     Indication: Dyspnoea
     Dosage: UNKNOWN UNKNOWN
     Route: 055
  2. SYMBICORT [Suspect]
     Active Substance: BUDESONIDE\FORMOTEROL FUMARATE DIHYDRATE
     Indication: Cough
     Dosage: UNKNOWN UNKNOWN
     Route: 055
  3. SYMBICORT [Suspect]
     Active Substance: BUDESONIDE\FORMOTEROL FUMARATE DIHYDRATE
     Indication: Conjunctival hyperaemia
     Dosage: UNKNOWN UNKNOWN
     Route: 055
  4. AMOXICILLIN [Concomitant]
     Active Substance: AMOXICILLIN
  5. PREVNAR [Concomitant]
     Active Substance: PNEUMOCOCCAL 7-VALENT CONJUGATE VACCINE (DIPHTHERIA CRM197 PROTEIN)
  6. CORTISOL [Concomitant]
     Active Substance: HYDROCORTISONE

REACTIONS (24)
  - Chest pain [Unknown]
  - Asphyxia [Unknown]
  - Dyspnoea [Unknown]
  - Chest discomfort [Unknown]
  - Lower respiratory tract congestion [Unknown]
  - Eye disorder [Unknown]
  - Cough [Unknown]
  - Bradycardia [Unknown]
  - Contusion [Unknown]
  - Muscle tightness [Unknown]
  - Increased appetite [Unknown]
  - Micturition disorder [Unknown]
  - Poor quality sleep [Unknown]
  - Somnolence [Unknown]
  - Tremor [Unknown]
  - Vision blurred [Unknown]
  - Dry skin [Unknown]
  - Muscle twitching [Unknown]
  - Wound [Unknown]
  - Palpitations [Unknown]
  - Peripheral swelling [Unknown]
  - Device use issue [Unknown]
  - Product temperature excursion issue [Unknown]
  - Device issue [Unknown]

NARRATIVE: CASE EVENT DATE: 20221109
